FAERS Safety Report 7266206-1 (Version None)
Quarter: 2011Q1

REPORT INFORMATION
  Report Type: 
  Country: None (occurrence: None)
  Receive Date: 20110131
  Receipt Date: 20101024
  Transmission Date: 20110831
  Serious: No
  Sender: FDA-Public Use
  Company Number: US-ABBOTT-10P-163-0681301-00

PATIENT
  Sex: Male
  Weight: 63.56 kg

DRUGS (3)
  1. LUPRON DEPOT [Suspect]
     Indication: PROSTATE CANCER
     Dates: start: 20100723, end: 20100912
  2. UROXATRAL [Concomitant]
     Indication: URINARY RETENTION
     Dates: start: 20101019
  3. CLONIDINE [Concomitant]
     Indication: HYPERTENSION
     Dates: start: 20101019

REACTIONS (8)
  - DEPRESSION [None]
  - ANXIETY [None]
  - BLOOD PRESSURE INCREASED [None]
  - SUICIDAL IDEATION [None]
  - FEELING ABNORMAL [None]
  - HYPERTENSION [None]
  - SYNCOPE [None]
  - CONFUSIONAL STATE [None]
